FAERS Safety Report 9664238 (Version 1)
Quarter: 2013Q4

REPORT INFORMATION
  Report Type: Spontaneous
  Country: US (occurrence: None)
  Receive Date: 20131030
  Receipt Date: 20131030
  Transmission Date: 20140711
  Serious: Yes (Hospitalization)
  Sender: FDA-Public Use
  Company Number: None

PATIENT
  Age: 60 Year
  Sex: Female
  Weight: 64.5 kg

DRUGS (2)
  1. VENOFER [Suspect]
     Indication: IRON DEFICIENCY ANAEMIA
     Dosage: 500MG  Q 2WKS  IV
     Route: 042
     Dates: start: 20131017
  2. VENOFER [Concomitant]

REACTIONS (13)
  - Chills [None]
  - Dyspnoea [None]
  - Skin discolouration [None]
  - Infusion related reaction [None]
  - Nausea [None]
  - Vomiting [None]
  - Loss of consciousness [None]
  - Cold sweat [None]
  - Unresponsive to stimuli [None]
  - Blood pressure decreased [None]
  - Joint stiffness [None]
  - Joint swelling [None]
  - Local swelling [None]
